FAERS Safety Report 4772346-9 (Version None)
Quarter: 2005Q3

REPORT INFORMATION
  Report Type: 
  Country: None (occurrence: None)
  Receive Date: 20050916
  Receipt Date: 20050903
  Transmission Date: 20060218
  Serious: Yes (Other)
  Sender: FDA-Public Use
  Company Number: 2005123621

PATIENT
  Age: 18 Year
  Sex: Female

DRUGS (2)
  1. FRESHBURST LISTERINE (MENTHOL, METHYL SALICYLATE, EUCALUPTOL, THYMOL) [Suspect]
     Indication: INTENTIONAL MISUSE
     Dosage: 1.5 L ONCE, ORAL
     Route: 048
  2. FRESHBURST LISTERINE (MENTHOL, METHYL SALICYLATE, EUCALUPTOL, THYMOL) [Suspect]
     Indication: OVERDOSE
     Dosage: 1.5 L ONCE, ORAL
     Route: 048

REACTIONS (6)
  - ABDOMINAL PAIN UPPER [None]
  - DIZZINESS [None]
  - INTENTIONAL MISUSE [None]
  - MALAISE [None]
  - OVERDOSE [None]
  - VOMITING [None]
